FAERS Safety Report 25603456 (Version 2)
Quarter: 2025Q3

REPORT INFORMATION
  Report Type: Spontaneous
  Country: JP (occurrence: JP)
  Receive Date: 20250724
  Receipt Date: 20250808
  Transmission Date: 20251021
  Serious: Yes (Hospitalization, Other)
  Sender: SANOFI AVENTIS
  Company Number: JP-SA-2025SA191603

PATIENT
  Age: 83 Year
  Sex: Male

DRUGS (4)
  1. PLAVIX [Interacting]
     Active Substance: CLOPIDOGREL BISULFATE
     Indication: Aortic valve stenosis
     Route: 048
  2. REPAGLINIDE [Interacting]
     Active Substance: REPAGLINIDE
     Indication: Diabetes mellitus management
     Route: 065
  3. REPAGLINIDE [Interacting]
     Active Substance: REPAGLINIDE
     Route: 065
  4. LINAGLIPTIN [Concomitant]
     Active Substance: LINAGLIPTIN
     Indication: Diabetes mellitus management
     Route: 065

REACTIONS (4)
  - Hypoglycaemia [Recovered/Resolved]
  - Depressed level of consciousness [Recovered/Resolved]
  - Drug interaction [Recovered/Resolved]
  - Off label use [Unknown]
